FAERS Safety Report 10825804 (Version 1)
Quarter: 2015Q1

REPORT INFORMATION
  Report Type: Spontaneous
  Country: FR (occurrence: FR)
  Receive Date: 20150219
  Receipt Date: 20150219
  Transmission Date: 20150721
  Serious: Yes (Death)
  Sender: FDA-Public Use
  Company Number: FR-CIPLA LTD.-2015FR01327

PATIENT

DRUGS (6)
  1. CISPLATIN. [Suspect]
     Active Substance: CISPLATIN
     Indication: GERM CELL CANCER METASTATIC
     Dosage: 20 MG/M2, PER DAY, DAYS 1-5
  2. LENOGRASTIME G-CSF [Suspect]
     Active Substance: LENOGRASTIM
     Indication: GERM CELL CANCER METASTATIC
     Dosage: 263 MCG, PER DAY, FROM DAY 7-14 OF EACH CYCLE
  3. IFOSFAMIDE. [Suspect]
     Active Substance: IFOSFAMIDE
     Indication: GERM CELL CANCER METASTATIC
     Dosage: 1200 MG/M2, PER DAY, DAY 1-5
  4. GEMCITABINE [Suspect]
     Active Substance: GEMCITABINE\GEMCITABINE HYDROCHLORIDE
     Indication: GERM CELL CANCER METASTATIC
     Dosage: 1000 MG/M2, PER DAY, DAY 1 AND 5
  5. LENOGRASTIME G-CSF [Suspect]
     Active Substance: LENOGRASTIM
     Indication: COLONY STIMULATING FACTOR THERAPY
  6. MESNA. [Suspect]
     Active Substance: MESNA
     Indication: GERM CELL CANCER METASTATIC
     Dosage: 500 MG/M2, H0, H3, H7, AND H11 ON EACH DAY OF IFOSFAMIDE THERAPY
     Route: 042

REACTIONS (1)
  - Toxicity to various agents [Fatal]
